FAERS Safety Report 12480728 (Version 1)
Quarter: 2016Q2

REPORT INFORMATION
  Report Type: Spontaneous
  Country: TR (occurrence: TR)
  Receive Date: 20160620
  Receipt Date: 20160620
  Transmission Date: 20160815
  Serious: Yes (Other)
  Sender: FDA-Public Use
  Company Number: TR-FRESENIUS KABI-FK201603684

PATIENT
  Age: 60 Year
  Sex: Male

DRUGS (4)
  1. GEMCITABINE [Suspect]
     Active Substance: GEMCITABINE\GEMCITABINE HYDROCHLORIDE
     Indication: NON-SMALL CELL LUNG CANCER
     Route: 065
  2. CISPLATIN (MANUFACTURER UNKNOWN) [Suspect]
     Active Substance: CISPLATIN
     Indication: NON-SMALL CELL LUNG CANCER
     Route: 065
  3. VINCRISTINE (MANUFACTURER UNKNOWN) [Suspect]
     Active Substance: VINCRISTINE
     Indication: NON-SMALL CELL LUNG CANCER
     Route: 065
  4. DEXAMETHASONE. [Suspect]
     Active Substance: DEXAMETHASONE
     Indication: NON-SMALL CELL LUNG CANCER

REACTIONS (1)
  - Tendon rupture [Recovered/Resolved]
